FAERS Safety Report 24564050 (Version 2)
Quarter: 2024Q4

REPORT INFORMATION
  Report Type: Report from Study
  Country: US (occurrence: US)
  Receive Date: 20241030
  Receipt Date: 20241104
  Transmission Date: 20250114
  Serious: Yes (Death)
  Sender: ROCHE
  Company Number: US-ROCHE-10000120187

PATIENT
  Age: 43 Year
  Sex: Female

DRUGS (3)
  1. AVASTIN [Suspect]
     Active Substance: BEVACIZUMAB
     Indication: Malignant neoplasm of unknown primary site
     Dosage: INFUSE 500MG INTRAVENOUSLY EVERY 2 WEEK(S)
     Route: 042
  2. AVASTIN [Suspect]
     Active Substance: BEVACIZUMAB
     Indication: Small intestine carcinoma
     Dosage: INFUSE 500MG INTRAVENOUSLY EVERY 2 WEEK(S)
     Route: 042
  3. AVASTIN [Suspect]
     Active Substance: BEVACIZUMAB
     Dosage: DOSING WEIGHT IS 109 KG.
     Route: 065

REACTIONS (2)
  - Death [Fatal]
  - Off label use [Unknown]
